FAERS Safety Report 24760460 (Version 1)
Quarter: 2024Q4

REPORT INFORMATION
  Report Type: Spontaneous
  Country: JP (occurrence: JP)
  Receive Date: 20241220
  Receipt Date: 20241220
  Transmission Date: 20250114
  Serious: Yes (Other)
  Sender: BAYER HEALTHCARE PHARMACEUTICALS INC.
  Company Number: JP-BAYER-2024A180179

PATIENT
  Age: 67 Year
  Sex: Female

DRUGS (1)
  1. IOPROMIDE [Suspect]
     Active Substance: IOPROMIDE
     Dosage: DAILY DOSE 80 ML
     Dates: start: 20241213, end: 20241213

REACTIONS (6)
  - Anaphylactic reaction [Recovered/Resolved]
  - Oropharyngeal pain [Recovered/Resolved]
  - Conjunctival hyperaemia [Recovered/Resolved]
  - Dyspnoea [Recovered/Resolved]
  - Abdominal pain [Recovered/Resolved]
  - Urticaria [Recovered/Resolved]

NARRATIVE: CASE EVENT DATE: 20241213
